FAERS Safety Report 11314281 (Version 3)
Quarter: 2016Q1

REPORT INFORMATION
  Report Type: Report from Study
  Country: GB (occurrence: GB)
  Receive Date: 20150727
  Receipt Date: 20160307
  Transmission Date: 20160525
  Serious: Yes (Death, Other)
  Sender: FDA-Public Use
  Company Number: GB-CELGENE-GBR-2015074296

PATIENT
  Age: 66 Year
  Sex: Female

DRUGS (1)
  1. THALIDOMIDE [Suspect]
     Active Substance: THALIDOMIDE
     Indication: PLASMA CELL MYELOMA
     Dosage: 50 MILLIGRAM
     Route: 048
     Dates: start: 20110209, end: 20110427

REACTIONS (1)
  - Ovarian epithelial cancer [Fatal]

NARRATIVE: CASE EVENT DATE: 201105
